FAERS Safety Report 4501653-X (Version None)
Quarter: 2004Q4

REPORT INFORMATION
  Report Type: 
  Country: None (occurrence: None)
  Receive Date: 20041109
  Receipt Date: 20041101
  Transmission Date: 20050328
  Serious: Yes (Hospitalization)
  Sender: FDA-Public Use
  Company Number: 2004GB02178

PATIENT
  Age: 60 Year
  Sex: Male

DRUGS (6)
  1. IRESSA [Suspect]
     Indication: NON-SMALL CELL LUNG CANCER
     Dosage: 250 MG QD PO
     Route: 048
     Dates: start: 20040629
  2. OXYCONTIN [Concomitant]
  3. GABAPENTIN [Concomitant]
  4. BECLAZONE [Concomitant]
  5. MOVICOL [Concomitant]
  6. ZOTON [Concomitant]

REACTIONS (7)
  - ABDOMINAL DISCOMFORT [None]
  - ASTHENIA [None]
  - FAECAL INCONTINENCE [None]
  - GALLBLADDER ENLARGEMENT [None]
  - MALIGNANT NEOPLASM PROGRESSION [None]
  - METASTASES TO SPINE [None]
  - URINE FLOW DECREASED [None]
